FAERS Safety Report 9910845 (Version 1)
Quarter: 2014Q1

REPORT INFORMATION
  Report Type: Report from Study
  Country: US (occurrence: US)
  Receive Date: 20140219
  Receipt Date: 20140219
  Transmission Date: 20141002
  Serious: Yes (Other)
  Sender: FDA-Public Use
  Company Number: US-ALEXION-A201001783

PATIENT
  Sex: Male

DRUGS (1)
  1. SOLIRIS [Suspect]
     Indication: PAROXYSMAL NOCTURNAL HAEMOGLOBINURIA
     Dosage: UNK
     Route: 042

REACTIONS (8)
  - Intravascular haemolysis [Unknown]
  - Thrombocytopenia [Unknown]
  - Jaundice [Unknown]
  - Haemoglobinuria [Unknown]
  - Fatigue [Unknown]
  - Chromaturia [Unknown]
  - Asthenia [Unknown]
  - Pallor [Unknown]
